FAERS Safety Report 10611690 (Version 2)
Quarter: 2014Q4

REPORT INFORMATION
  Report Type: Spontaneous
  Country: PL (occurrence: PL)
  Receive Date: 20141126
  Receipt Date: 20141205
  Transmission Date: 20150529
  Serious: Yes (Disabling)
  Sender: FDA-Public Use
  Company Number: PL-ABBVIE-14P-129-1312845-00

PATIENT
  Sex: Male
  Weight: 90 kg

DRUGS (1)
  1. LIPANTHYL SUPRA [Suspect]
     Active Substance: FENOFIBRATE
     Indication: BLOOD CHOLESTEROL ABNORMAL
     Route: 048
     Dates: start: 2011, end: 201407

REACTIONS (5)
  - Gait disturbance [Not Recovered/Not Resolved]
  - Cough [Not Recovered/Not Resolved]
  - Dyspnoea [Not Recovered/Not Resolved]
  - Muscle injury [Not Recovered/Not Resolved]
  - Muscular weakness [Not Recovered/Not Resolved]
